FAERS Safety Report 9235841 (Version 1)
Quarter: 2013Q2

REPORT INFORMATION
  Report Type: Spontaneous
  Country: US (occurrence: None)
  Receive Date: 20130416
  Receipt Date: 20130416
  Transmission Date: 20140414
  Serious: No
  Sender: FDA-Public Use
  Company Number: None

PATIENT
  Age: 56 Year
  Sex: Female

DRUGS (1)
  1. COMBIPATCH [Suspect]
     Indication: HORMONE REPLACEMENT THERAPY
     Route: 061
     Dates: start: 20120410, end: 20130414

REACTIONS (6)
  - Type IV hypersensitivity reaction [None]
  - Application site rash [None]
  - Urticaria [None]
  - Skin exfoliation [None]
  - Skin disorder [None]
  - Application site pruritus [None]
